FAERS Safety Report 5426560-X (Version None)
Quarter: 2007Q3

REPORT INFORMATION
  Report Type: 
  Country: None (occurrence: None)
  Receive Date: 20070827
  Receipt Date: 20070702
  Transmission Date: 20080115
  Serious: Yes (Other)
  Sender: FDA-Public Use
  Company Number: US-PURDUE-USA_2007_0028506

PATIENT
  Sex: Female
  Weight: 70 kg

DRUGS (2)
  1. OXYCONTIN [Suspect]
     Indication: PAIN
     Dosage: UNK MG, SEE TEXT
     Route: 048
     Dates: start: 19960101, end: 20020101
  2. ESTROGENS [Concomitant]
     Indication: DRUG USE FOR UNKNOWN INDICATION
     Dosage: UNK, UNK

REACTIONS (5)
  - BLINDNESS [None]
  - DRUG ABUSER [None]
  - DRUG DEPENDENCE [None]
  - HALLUCINATION [None]
  - PARANOIA [None]
